FAERS Safety Report 5303034-8 (Version None)
Quarter: 2007Q2

REPORT INFORMATION
  Report Type: 
  Country: None (occurrence: None)
  Receive Date: 20070420
  Receipt Date: 20070412
  Transmission Date: 20071010
  Serious: Yes (Hospitalization)
  Sender: FDA-Public Use
  Company Number: AU-AVENTIS-200713295GDDC

PATIENT
  Sex: Male

DRUGS (10)
  1. ARAVA [Suspect]
     Route: 048
     Dates: start: 20070404, end: 20070406
  2. ARAVA [Suspect]
     Route: 048
     Dates: start: 20070407
  3. EPILIM [Suspect]
     Dosage: DOSE: UNK
  4. VIT D [Concomitant]
     Dosage: DOSE: UNK
     Route: 048
  5. PREDNISONE TAB [Concomitant]
     Dosage: DOSE: UNK
  6. OMEPRAZOLE [Concomitant]
     Dosage: DOSE: UNK
  7. AMLODIPINE [Concomitant]
     Dosage: DOSE: UNK
  8. ALENDRONATE SODIUM [Concomitant]
     Dosage: DOSE: UNK
  9. WARFARIN SODIUM [Concomitant]
     Dosage: DOSE: UNK
  10. SIROLIMUS [Concomitant]
     Dosage: DOSE: UNK

REACTIONS (2)
  - HYPONATRAEMIA [None]
  - PNEUMONIA [None]
